FAERS Safety Report 21751464 (Version 2)
Quarter: 2024Q3

REPORT INFORMATION
  Report Type: Spontaneous
  Country: US (occurrence: US)
  Receive Date: 20221220
  Receipt Date: 20240912
  Transmission Date: 20241017
  Serious: No
  Sender: SANOFI AVENTIS
  Company Number: US-SA-SAC20221216001053

PATIENT
  Age: 19 Year
  Sex: Male

DRUGS (1)
  1. DUPIXENT [Suspect]
     Active Substance: DUPILUMAB
     Indication: Dermatitis atopic
     Dosage: 300MG, QOW
     Route: 058
     Dates: start: 202106

REACTIONS (4)
  - Photophobia [Recovering/Resolving]
  - Ocular hyperaemia [Not Recovered/Not Resolved]
  - Eye pruritus [Recovering/Resolving]
  - Dry eye [Unknown]

NARRATIVE: CASE EVENT DATE: 20240801
